FAERS Safety Report 5451454-3 (Version None)
Quarter: 2007Q3

REPORT INFORMATION
  Report Type: 
  Country: None (occurrence: None)
  Receive Date: 20070913
  Receipt Date: 20070905
  Transmission Date: 20080115
  Serious: Yes (Other)
  Sender: FDA-Public Use
  Company Number: BR-ROCHE-515666

PATIENT
  Age: 32 Year
  Sex: Female
  Weight: 55 kg

DRUGS (1)
  1. ISOTRETINOIN [Suspect]
     Indication: SEBACEOUS GLAND DISORDER
     Route: 048
     Dates: start: 20070801, end: 20070904

REACTIONS (2)
  - NO ADVERSE REACTION [None]
  - PREGNANCY [None]
